FAERS Safety Report 8836966 (Version 1)
Quarter: 2012Q4

REPORT INFORMATION
  Report Type: 
  Country: BR (occurrence: BR)
  Receive Date: 20121012
  Receipt Date: 20121012
  Transmission Date: 20130627
  Serious: Yes (Other)
  Sender: FDA-Public Use
  Company Number: BR-PFIZER INC-2012206151

PATIENT
  Age: 64 Year
  Sex: Female
  Weight: 59 kg

DRUGS (14)
  1. XALATAN [Suspect]
     Indication: INTRAOCULAR PRESSURE INCREASED
     Dosage: one drop in each eye, twice daily
     Route: 047
     Dates: start: 201206
  2. AMLODIPINE [Concomitant]
     Indication: ANTICOAGULANT THERAPY
     Dosage: 10 mg, 1x/day
     Dates: start: 2009
  3. AMLODIPINE [Concomitant]
     Indication: INFARCTION
  4. AMLODIPINE [Concomitant]
     Indication: CARDIAC DISORDER
  5. AAS [Concomitant]
     Indication: ANTICOAGULANT THERAPY
     Dosage: one tablet after lunchtime
     Dates: start: 2009
  6. CLOPIDOGREL [Concomitant]
     Indication: ANTICOAGULANT THERAPY
     Dosage: 75 mg, 1x/day
     Dates: start: 2009
  7. CLOPIDOGREL [Concomitant]
     Indication: CARDIOMYOPATHY
  8. LIPITOR [Concomitant]
     Indication: BLOOD CHOLESTEROL
     Dosage: 20 mg, 1x/day at night
     Dates: start: 2009
  9. SELOZOK [Concomitant]
     Indication: BLOOD PRESSURE INCREASED
     Dosage: 50 mg, 2x/day
     Dates: start: 2009
  10. SELOZOK [Concomitant]
     Indication: ARRHYTHMIA
  11. SELOZOK [Concomitant]
     Indication: ANGINA PECTORIS
  12. SELOZOK [Concomitant]
     Indication: MYOCARDIAL INFARCTION
  13. SUSTRATE [Concomitant]
     Indication: CARDIAC DISORDER
     Dosage: 10 mg, 1x/day
     Dates: start: 2010
  14. BUMETANIDE [Concomitant]
     Indication: SWELLING
     Dosage: UNK
     Dates: start: 2009, end: 201208

REACTIONS (3)
  - Cataract [Unknown]
  - Thrombosis [Unknown]
  - Off label use [Unknown]
